FAERS Safety Report 8016852-2 (Version None)
Quarter: 2012Q1

REPORT INFORMATION
  Report Type: 
  Country: None (occurrence: None)
  Receive Date: 20120102
  Receipt Date: 20111219
  Transmission Date: 20120608
  Serious: Yes (Other)
  Sender: FDA-Public Use
  Company Number: PHHY2011JP100659

PATIENT
  Age: 78 Year
  Sex: Female

DRUGS (2)
  1. FAMVIR [Suspect]
     Indication: HERPES ZOSTER
     Dosage: 1500 MG, QD
     Route: 048
     Dates: start: 20111101, end: 20111105
  2. ARICEPT [Suspect]
     Dosage: 5 MG, QD
     Route: 048

REACTIONS (15)
  - BLOOD CHLORIDE DECREASED [None]
  - BLOOD SODIUM DECREASED [None]
  - BLOOD CREATINE DECREASED [None]
  - GAIT DISTURBANCE [None]
  - BLOOD POTASSIUM INCREASED [None]
  - BLOOD CREATINE PHOSPHOKINASE INCREASED [None]
  - FALL [None]
  - ASPARTATE AMINOTRANSFERASE INCREASED [None]
  - HIGH DENSITY LIPOPROTEIN DECREASED [None]
  - DIZZINESS [None]
  - RHABDOMYOLYSIS [None]
  - CONTUSION [None]
  - ASTHENIA [None]
  - THYROGLOBULIN DECREASED [None]
  - BLOOD UREA INCREASED [None]
